FAERS Safety Report 26154427 (Version 1)
Quarter: 2025Q4

REPORT INFORMATION
  Report Type: Spontaneous
  Country: IR (occurrence: IR)
  Receive Date: 20251215
  Receipt Date: 20251215
  Transmission Date: 20260118
  Serious: Yes (Other)
  Sender: MERCK SHARP & DOHME LLC
  Company Number: IR-009507513-2359974

PATIENT
  Age: 16 Year
  Sex: Male

DRUGS (17)
  1. POSACONAZOLE [Suspect]
     Active Substance: POSACONAZOLE
     Indication: Rhinocerebral mucormycosis
     Route: 042
     Dates: start: 20241008, end: 20241008
  2. POSACONAZOLE [Suspect]
     Active Substance: POSACONAZOLE
     Indication: Rhinocerebral mucormycosis
     Route: 042
     Dates: start: 20241009
  3. CYCLOSPORINE [Concomitant]
     Active Substance: CYCLOSPORINE
     Indication: Aplastic anaemia
     Dates: start: 202408, end: 20240926
  4. CYCLOSPORINE [Concomitant]
     Active Substance: CYCLOSPORINE
     Indication: Aplastic anaemia
     Dates: start: 20240927, end: 20241001
  5. CYCLOSPORINE [Concomitant]
     Active Substance: CYCLOSPORINE
     Indication: Aplastic anaemia
     Dates: start: 20241002, end: 20241009
  6. CYCLOSPORINE [Concomitant]
     Active Substance: CYCLOSPORINE
     Indication: Aplastic anaemia
     Dates: start: 20241010
  7. PREDNISOLONE [Concomitant]
     Active Substance: PREDNISOLONE
     Indication: Aplastic anaemia
     Dates: start: 202408, end: 20240926
  8. PREDNISOLONE [Concomitant]
     Active Substance: PREDNISOLONE
     Indication: Aplastic anaemia
     Dates: start: 20240927, end: 20241005
  9. PREDNISOLONE [Concomitant]
     Active Substance: PREDNISOLONE
     Indication: Aplastic anaemia
     Dates: start: 20241006
  10. PIPERACILLIN AND TAZOBACTAM [Concomitant]
     Active Substance: PIPERACILLIN SODIUM\TAZOBACTAM SODIUM
     Dosage: DOSE 4G/500MG
     Dates: start: 20241001, end: 20241007
  11. ELTROMBOPAG [Concomitant]
     Active Substance: ELTROMBOPAG
     Indication: Aplastic anaemia
     Dates: start: 202408
  12. MEROPENEM [Concomitant]
     Active Substance: MEROPENEM
     Indication: Antibiotic therapy
     Dosage: TIME INTERVAL: 0.33333333 DAYS
     Dates: start: 20240908, end: 20240929
  13. CLINDAMYCIN [Concomitant]
     Active Substance: CLINDAMYCIN
     Indication: Antibiotic therapy
     Dosage: TIME INTERVAL: 0.33333333 DAYS
     Dates: start: 20240908, end: 20240925
  14. VANCOMYCIN [Concomitant]
     Active Substance: VANCOMYCIN
     Indication: Antibiotic therapy
     Dates: start: 20240908, end: 20240930
  15. AMPHOTERICIN B [Concomitant]
     Active Substance: AMPHOTERICIN B
     Indication: Rhinocerebral mucormycosis
     Dates: start: 20240929, end: 20241007
  16. AMPHOTERICIN B [Concomitant]
     Active Substance: AMPHOTERICIN B
     Indication: Rhinocerebral mucormycosis
     Dates: start: 20241008
  17. LINEZOLID [Concomitant]
     Active Substance: LINEZOLID
     Dates: start: 20241001, end: 20241007

REACTIONS (1)
  - Drug ineffective [Unknown]

NARRATIVE: CASE EVENT DATE: 20241008
